FAERS Safety Report 25141684 (Version 1)
Quarter: 2025Q1

REPORT INFORMATION
  Report Type: Spontaneous
  Country: DE (occurrence: DE)
  Receive Date: 20250331
  Receipt Date: 20250331
  Transmission Date: 20250408
  Serious: Yes (Death, Hospitalization)
  Sender: TEVA
  Company Number: DE-TEVA-VS-3315033

PATIENT
  Age: 74 Year
  Sex: Female

DRUGS (6)
  1. CARBOPLATIN [Suspect]
     Active Substance: CARBOPLATIN
     Indication: Bronchial carcinoma
     Route: 065
  2. CARBOPLATIN [Suspect]
     Active Substance: CARBOPLATIN
     Indication: Bronchial carcinoma
     Route: 065
     Dates: start: 2022
  3. ATEZOLIZUMAB [Suspect]
     Active Substance: ATEZOLIZUMAB
     Indication: Bronchial carcinoma
     Route: 065
     Dates: start: 202206
  4. ETOPOSIDE [Suspect]
     Active Substance: ETOPOSIDE
     Indication: Bronchial carcinoma
     Route: 065
  5. ETOPOSIDE [Suspect]
     Active Substance: ETOPOSIDE
     Indication: Bronchial carcinoma
     Route: 065
     Dates: start: 2022
  6. IMMUNE GLOBULIN NOS [Suspect]
     Active Substance: IMMUNE GLOBULIN NOS
     Indication: Paraneoplastic neurological syndrome
     Route: 042

REACTIONS (3)
  - Drug ineffective [Fatal]
  - Anti-neuronal antibody [Not Recovered/Not Resolved]
  - Paraneoplastic neurological syndrome [Not Recovered/Not Resolved]

NARRATIVE: CASE EVENT DATE: 20220601
